FAERS Safety Report 7872801-9 (Version None)
Quarter: 2011Q4

REPORT INFORMATION
  Report Type: 
  Country: None (occurrence: None)
  Receive Date: 20111030
  Receipt Date: 20110428
  Transmission Date: 20120403
  Serious: No
  Sender: FDA-Public Use
  Company Number: US-AMGEN-USASP2011007816

PATIENT
  Age: 80 Year
  Sex: Female

DRUGS (1)
  1. ENBREL [Suspect]
     Indication: PSORIATIC ARTHROPATHY
     Dosage: 50 MG, QWK
     Dates: start: 20101215, end: 20110308

REACTIONS (3)
  - DRUG INEFFECTIVE [None]
  - RHEUMATOID ARTHRITIS [None]
  - INCORRECT PRODUCT STORAGE [None]
